FAERS Safety Report 5070424-0 (Version None)
Quarter: 2006Q3

REPORT INFORMATION
  Report Type: 
  Country: None (occurrence: None)
  Receive Date: 20060714
  Receipt Date: 20060414
  Transmission Date: 20061208
  Serious: No
  Sender: FDA-Public Use
  Company Number: 2006SP001705

PATIENT
  Sex: Female

DRUGS (4)
  1. LUNESTA [Suspect]
     Indication: INSOMNIA
     Dosage: SEE IMAGE
     Route: 048
  2. ATORVASTATIN CALCIUM [Concomitant]
  3. PRINIVIL [Concomitant]
  4. WATER PILLS [Concomitant]

REACTIONS (1)
  - DYSGEUSIA [None]
